FAERS Safety Report 7397439-1 (Version None)
Quarter: 2011Q2

REPORT INFORMATION
  Report Type: 
  Country: None (occurrence: None)
  Receive Date: 20110401
  Receipt Date: 20110401
  Transmission Date: 20111010
  Serious: Yes (Life-Threatening, Hospitalization)
  Sender: FDA-Public Use
  Company Number: None

PATIENT
  Age: 46 Year
  Sex: Male
  Weight: 64.7 kg

DRUGS (2)
  1. LOVENOX [Suspect]
     Indication: VENA CAVA THROMBOSIS
     Dosage: 80 MG BID SC (SUBCUTANEOUS)
     Route: 058
     Dates: start: 20110311, end: 20110325
  2. WARFARIN [Suspect]
     Indication: VENA CAVA THROMBOSIS
     Dosage: 17MG DAILY PO (ORAL)
     Route: 048
     Dates: start: 20110311, end: 20110325

REACTIONS (3)
  - RECTAL HAEMORRHAGE [None]
  - MOUTH HAEMORRHAGE [None]
  - INJECTION SITE HAEMORRHAGE [None]
